FAERS Safety Report 7925355-2 (Version None)
Quarter: 2011Q4

REPORT INFORMATION
  Report Type: 
  Country: None (occurrence: None)
  Receive Date: 20111118
  Receipt Date: 20110405
  Transmission Date: 20120403
  Serious: No
  Sender: FDA-Public Use
  Company Number: US-AMGEN-USASP2011017923

PATIENT
  Age: 53 Year
  Sex: Female

DRUGS (7)
  1. AMBIEN CR [Concomitant]
     Dosage: 6.25 MG, UNK
  2. PREDNISONE TAB [Concomitant]
     Dosage: 1 MG, UNK
  3. SEROQUEL [Concomitant]
     Dosage: 100 MG, UNK
  4. ENBREL [Suspect]
     Indication: PRODUCT USED FOR UNKNOWN INDICATION
     Dosage: 50 MG, 2 TIMES/WK
     Route: 058
  5. PROZAC [Concomitant]
     Dosage: 10 MG, UNK
  6. KLONOPIN [Concomitant]
     Dosage: 0.5 MG, UNK
  7. ZANAFLEX [Concomitant]
     Dosage: 2 MG, UNK

REACTIONS (1)
  - NASOPHARYNGITIS [None]
